FAERS Safety Report 7276700-5 (Version None)
Quarter: 2011Q1

REPORT INFORMATION
  Report Type: 
  Country: None (occurrence: None)
  Receive Date: 20110204
  Receipt Date: 20110118
  Transmission Date: 20110831
  Serious: Yes (Hospitalization)
  Sender: FDA-Public Use
  Company Number: CO-GENENTECH-311948

PATIENT
  Sex: Male

DRUGS (1)
  1. PULMOZYME [Suspect]
     Indication: CYSTIC FIBROSIS
     Dosage: 2.5 ML, QD
     Route: 055
     Dates: start: 20090828

REACTIONS (3)
  - PNEUMONIA [None]
  - ASTHENIA [None]
  - COUGH [None]
